FAERS Safety Report 12659189 (Version 1)
Quarter: 2016Q3

REPORT INFORMATION
  Report Type: Spontaneous
  Country: US (occurrence: US)
  Receive Date: 20160817
  Receipt Date: 20160817
  Transmission Date: 20161109
  Serious: No
  Sender: FDA-Public Use
  Company Number: US-GLAXOSMITHKLINE-PHHY2016US008269

PATIENT
  Age: 14 Year
  Sex: Female

DRUGS (1)
  1. CAMBIA [Suspect]
     Active Substance: DICLOFENAC POTASSIUM
     Indication: MIGRAINE
     Dosage: UNK
     Route: 065
     Dates: start: 2015

REACTIONS (2)
  - Off label use [Not Recovered/Not Resolved]
  - Drug administered to patient of inappropriate age [Not Recovered/Not Resolved]

NARRATIVE: CASE EVENT DATE: 2015
